FAERS Safety Report 5386779-3 (Version None)
Quarter: 2007Q3

REPORT INFORMATION
  Report Type: 
  Country: None (occurrence: None)
  Receive Date: 20070713
  Receipt Date: 20070702
  Transmission Date: 20080115
  Serious: Yes (Hospitalization, Other)
  Sender: FDA-Public Use
  Company Number: US-PFIZER INC-2006113175

PATIENT
  Age: 42 Year
  Sex: Male
  Weight: 115.2 kg

DRUGS (2)
  1. BEXTRA [Suspect]
     Indication: ARTHRITIS
     Dates: start: 20030714, end: 20031026
  2. VIOXX [Suspect]
     Indication: ARTHRITIS
     Dates: start: 20020405

REACTIONS (1)
  - CEREBROVASCULAR ACCIDENT [None]
